FAERS Safety Report 13500571 (Version 2)
Quarter: 2019Q3

REPORT INFORMATION
  Report Type: Spontaneous
  Country: US (occurrence: US)
  Receive Date: 20170501
  Receipt Date: 20190821
  Transmission Date: 20191004
  Serious: Yes (Other)
  Sender: FDA-Public Use
  Company Number: US-TEVA-764077USA

PATIENT
  Sex: Female

DRUGS (1)
  1. BUPRENORPHINE. [Suspect]
     Active Substance: BUPRENORPHINE
     Dosage: ADDITIONAL 4MG DOSE AS REQUIRED
     Route: 065

REACTIONS (3)
  - Placental disorder [Unknown]
  - Maternal exposure during pregnancy [Unknown]
  - Placental hypertrophy [Unknown]
